FAERS Safety Report 18203641 (Version 1)
Quarter: 2020Q3

REPORT INFORMATION
  Report Type: Spontaneous
  Country: US (occurrence: US)
  Receive Date: 20200827
  Receipt Date: 20200827
  Transmission Date: 20201103
  Serious: No
  Sender: FDA-Public Use
  Company Number: US-JNJFOC-20200836104

PATIENT
  Sex: Female

DRUGS (1)
  1. WOMENS ROGAINE [Suspect]
     Active Substance: MINOXIDIL
     Indication: ALOPECIA
     Route: 061
     Dates: start: 20200821

REACTIONS (3)
  - Inappropriate schedule of product administration [Unknown]
  - Application site pruritus [Not Recovered/Not Resolved]
  - Underdose [Unknown]

NARRATIVE: CASE EVENT DATE: 20200821
